FAERS Safety Report 20026207 (Version 1)
Quarter: 2021Q4

REPORT INFORMATION
  Report Type: Spontaneous
  Country: US (occurrence: US)
  Receive Date: 20211102
  Receipt Date: 20211102
  Transmission Date: 20220303
  Serious: Yes (Hospitalization)
  Sender: FDA-Public Use
  Company Number: US-RIGEL PHARMACEUTICALS, INC.-2021FOS000724

PATIENT
  Age: 60 Year
  Sex: Female

DRUGS (1)
  1. TAVALISSE [Suspect]
     Active Substance: FOSTAMATINIB
     Indication: Product used for unknown indication
     Dosage: 150 MG, BID
     Route: 048

REACTIONS (10)
  - Hospitalisation [Unknown]
  - Headache [Unknown]
  - Taste disorder [Unknown]
  - Back pain [Unknown]
  - Hypoaesthesia oral [Unknown]
  - Fibromyalgia [Unknown]
  - Abdominal pain [Unknown]
  - Rash [Unknown]
  - Diarrhoea [Unknown]
  - Hypertension [Unknown]

NARRATIVE: CASE EVENT DATE: 20211012
